FAERS Safety Report 5643837-3 (Version None)
Quarter: 2008Q1

REPORT INFORMATION
  Report Type: 
  Country: None (occurrence: None)
  Receive Date: 20080226
  Receipt Date: 20080211
  Transmission Date: 20080703
  Serious: Yes (Death, Life-Threatening, Hospitalization)
  Sender: FDA-Public Use
  Company Number: 2007002294

PATIENT
  Age: 75 Year
  Sex: Male
  Weight: 73 kg

DRUGS (6)
  1. ERLOTINIB (ERLOTINIB HCI) (TABLET) (ERLOTINIB) [Suspect]
     Dosage: 150 MG, QD, ORAL, 100 MG, QD, ORAL
     Route: 048
     Dates: start: 20070726, end: 20070905
  2. ERLOTINIB (ERLOTINIB HCI) (TABLET) (ERLOTINIB) [Suspect]
     Dosage: 150 MG, QD, ORAL, 100 MG, QD, ORAL
     Route: 048
     Dates: start: 20070909, end: 20071021
  3. SU11248 [Suspect]
     Indication: NON-SMALL CELL LUNG CANCER
     Dosage: 37.5 MG, QD, ORAL
     Route: 048
     Dates: start: 20070726, end: 20070905
  4. MAGIC MOUTHWASH [Concomitant]
  5. SULINDAC [Concomitant]
  6. COMBIVENT [Concomitant]

REACTIONS (14)
  - ABSCESS [None]
  - ANAEMIA [None]
  - ANOREXIA [None]
  - ASTHENIA [None]
  - BLOOD CREATININE INCREASED [None]
  - DEHYDRATION [None]
  - DERMAL CYST [None]
  - FAILURE TO THRIVE [None]
  - GASTROINTESTINAL HAEMORRHAGE [None]
  - HYPOTENSION [None]
  - MALIGNANT NEOPLASM PROGRESSION [None]
  - OESOPHAGITIS [None]
  - PAIN [None]
  - PROTHROMBIN TIME PROLONGED [None]
